FAERS Safety Report 8022948-1 (Version None)
Quarter: 2011Q4

REPORT INFORMATION
  Report Type: 
  Country: None (occurrence: None)
  Receive Date: 20111130
  Receipt Date: 20110425
  Transmission Date: 20120403
  Serious: Yes (Other)
  Sender: FDA-Public Use
  Company Number: 327170

PATIENT
  Age: 60 Year
  Sex: Female
  Weight: 72.6 kg

DRUGS (5)
  1. COREG [Concomitant]
  2. NOVOLOG MIX 70/30 [Suspect]
     Indication: TYPE 2 DIABETES MELLITUS
     Dosage: 10 U, SUBCUTANEOUS
     Route: 058
     Dates: start: 20110421
  3. ASPIRIN [Concomitant]
  4. PLAVIX [Concomitant]
  5. DIAVAN (ASCORBIC ACID, CHROMIUM, SELENIUM, VANADYL SULFATE) [Concomitant]

REACTIONS (1)
  - BLOOD GLUCOSE INCREASED [None]
